FAERS Safety Report 5839675-9 (Version None)
Quarter: 2008Q3

REPORT INFORMATION
  Report Type: 
  Country: None (occurrence: None)
  Receive Date: 20080811
  Receipt Date: 20080731
  Transmission Date: 20090109
  Serious: Yes (Hospitalization)
  Sender: FDA-Public Use
  Company Number: PHEH2001US02115

PATIENT
  Sex: Male
  Weight: 109.5 kg

DRUGS (9)
  1. RAD 666 RAD+ [Suspect]
     Indication: LUNG TRANSPLANT
     Dosage: 1.5 MG, BID
     Route: 048
     Dates: start: 20000605, end: 20030313
  2. NEORAL [Suspect]
     Indication: LUNG TRANSPLANT
     Dosage: 150 MG, BID
     Route: 048
     Dates: start: 20000824
  3. NEORAL [Suspect]
     Dosage: 75 MG, BID
     Route: 048
  4. NEORAL [Suspect]
     Dosage: 50 MG, BID
     Route: 048
     Dates: end: 20030421
  5. NEORAL [Suspect]
     Dosage: 75 MG, BID
     Route: 048
     Dates: start: 20030422
  6. PREDNISONE TAB [Concomitant]
     Indication: LUNG TRANSPLANT
     Dosage: 10 MG, QD
     Route: 048
  7. LASIX [Concomitant]
     Dosage: 100MG QAM, 40MG QPM
     Route: 048
  8. ZOROXIN [Concomitant]
     Dates: end: 20010302
  9. SYNTHROID [Concomitant]
     Dosage: .225 QD

REACTIONS (23)
  - ABDOMINAL PAIN [None]
  - CARDIAC FAILURE CONGESTIVE [None]
  - CLOSTRIDIAL INFECTION [None]
  - CONCOMITANT DISEASE PROGRESSION [None]
  - DECREASED APPETITE [None]
  - DEPRESSION [None]
  - DIARRHOEA [None]
  - DYSPNOEA [None]
  - HYPERVOLAEMIA [None]
  - INFLAMMATION [None]
  - LOCALISED OEDEMA [None]
  - LUNG INFILTRATION [None]
  - NAUSEA [None]
  - NEPHROPATHY TOXIC [None]
  - OEDEMA [None]
  - PSEUDOMEMBRANOUS COLITIS [None]
  - PYREXIA [None]
  - RENAL FAILURE [None]
  - SINUS CONGESTION [None]
  - SINUS OPERATION [None]
  - SINUSITIS [None]
  - STAPHYLOCOCCAL INFECTION [None]
  - SUPRAPUBIC PAIN [None]
